FAERS Safety Report 8953891 (Version 1)
Quarter: 2012Q4

REPORT INFORMATION
  Report Type: 
  Country: US (occurrence: US)
  Receive Date: 20121206
  Receipt Date: 20121206
  Transmission Date: 20130627
  Serious: Yes (Hospitalization)
  Sender: FDA-Public Use
  Company Number: US-BAXTER-2012BAX025335

PATIENT
  Sex: Male

DRUGS (1)
  1. DIANEAL PD2 [Suspect]
     Indication: CONTINUOUS CYCLING PERITONEAL DIALYSIS
     Route: 033

REACTIONS (1)
  - Cellulitis [Recovered/Resolved]
